FAERS Safety Report 8409571 (Version 2)
Quarter: 2014Q2

REPORT INFORMATION
  Report Type: Spontaneous
  Country: US (occurrence: US)
  Receive Date: 20120216
  Receipt Date: 20140606
  Transmission Date: 20141212
  Serious: Yes (Other)
  Sender: FDA-Public Use
  Company Number: US-ROCHE-1030932

PATIENT
  Age: 29 Year
  Sex: Female
  Weight: 57.2 kg

DRUGS (4)
  1. ACCUTANE [Suspect]
     Indication: ACNE
     Route: 048
     Dates: start: 19971202, end: 199804
  2. ACCUTANE [Suspect]
     Route: 048
     Dates: start: 19990121, end: 199905
  3. ACCUTANE [Suspect]
     Route: 048
     Dates: start: 20000212
  4. ACCUTANE [Suspect]
     Route: 048
     Dates: start: 200005, end: 200006

REACTIONS (6)
  - Colitis ulcerative [Unknown]
  - Crohn^s disease [Unknown]
  - Proctitis [Unknown]
  - Emotional distress [Unknown]
  - Inflammatory bowel disease [Unknown]
  - Osteopenia [Unknown]
